FAERS Safety Report 19180186 (Version 1)
Quarter: 2021Q2

REPORT INFORMATION
  Report Type: Spontaneous
  Country: NZ (occurrence: NZ)
  Receive Date: 20210426
  Receipt Date: 20210426
  Transmission Date: 20210717
  Serious: Yes (Hospitalization)
  Sender: FDA-Public Use
  Company Number: NZ-ABBVIE-21K-118-3869371-00

PATIENT
  Sex: Male

DRUGS (1)
  1. VENETOCLAX. [Suspect]
     Active Substance: VENETOCLAX
     Indication: B-CELL SMALL LYMPHOCYTIC LYMPHOMA RECURRENT
     Route: 048

REACTIONS (1)
  - Neutropenic sepsis [Unknown]
